FAERS Safety Report 10421955 (Version 1)
Quarter: 2014Q3

REPORT INFORMATION
  Report Type: Spontaneous
  Country: TH (occurrence: TH)
  Receive Date: 20140901
  Receipt Date: 20140901
  Transmission Date: 20150326
  Serious: Yes (Other)
  Sender: FDA-Public Use
  Company Number: PHHY2014TH107503

PATIENT
  Age: 75 Year
  Sex: Female

DRUGS (1)
  1. ZOLEDRONATE [Suspect]
     Active Substance: ZOLEDRONIC ACID
     Indication: BREAST CANCER
     Dosage: 4 MG EVERY 6 WEEKS
     Route: 041
     Dates: start: 2002

REACTIONS (6)
  - Gait disturbance [Recovering/Resolving]
  - Osteonecrosis [Unknown]
  - Arthralgia [Unknown]
  - Groin pain [Recovering/Resolving]
  - Acetabulum fracture [Recovering/Resolving]
  - Osteoarthritis [Unknown]

NARRATIVE: CASE EVENT DATE: 2009
